FAERS Safety Report 16712023 (Version 1)
Quarter: 2019Q3

REPORT INFORMATION
  Report Type: Spontaneous
  Country: US (occurrence: US)
  Receive Date: 20190816
  Receipt Date: 20190816
  Transmission Date: 20191004
  Serious: No
  Sender: FDA-Public Use
  Company Number: US-TEVA-2019-US-1092516

PATIENT
  Sex: Female

DRUGS (1)
  1. ELETRIPTAN TEVA [Suspect]
     Active Substance: ELETRIPTAN
     Route: 065

REACTIONS (6)
  - Dry mouth [Unknown]
  - Nausea [Unknown]
  - Migraine [Unknown]
  - Presyncope [Unknown]
  - Dizziness [Unknown]
  - Feeling hot [Unknown]
